FAERS Safety Report 14325127 (Version 1)
Quarter: 2017Q4

REPORT INFORMATION
  Report Type: Spontaneous
  Country: US (occurrence: US)
  Receive Date: 20171223
  Receipt Date: 20171223
  Transmission Date: 20180321
  Serious: Yes (Other)
  Sender: FDA-Public Use
  Company Number: None

PATIENT
  Age: 63 Year
  Sex: Female
  Weight: 67.5 kg

DRUGS (13)
  1. ALIGN PROBIOTIC [Concomitant]
  2. NALTREXONE [Concomitant]
     Active Substance: NALTREXONE
  3. HYDROXYCHLORITHIAXIDE [Concomitant]
  4. BENADRYL [Concomitant]
     Active Substance: DIPHENHYDRAMINE HYDROCHLORIDE
  5. PRESERV EYE VITAMINS [Concomitant]
  6. POTASSIUM [Concomitant]
     Active Substance: POTASSIUM
  7. ACETOMINIPHEN [Concomitant]
  8. ALLEGRA [Concomitant]
     Active Substance: FEXOFENADINE HYDROCHLORIDE
  9. MULTI VITAMIN [Concomitant]
     Active Substance: VITAMINS
  10. CLOBETESOL [Suspect]
     Active Substance: CLOBETASOL
     Indication: ECZEMA
     Route: 061
     Dates: start: 20091212, end: 20140607
  11. SERTALINE [Concomitant]
     Active Substance: SERTRALINE HYDROCHLORIDE
  12. HYDROXYZINE [Concomitant]
     Active Substance: HYDROXYZINE HYDROCHLORIDE
  13. DUPIXENT [Concomitant]
     Active Substance: DUPILUMAB

REACTIONS (8)
  - Secretion discharge [None]
  - Skin exfoliation [None]
  - Swelling [None]
  - Therapy cessation [None]
  - Impaired work ability [None]
  - Burning sensation [None]
  - Skin disorder [None]
  - Condition aggravated [None]

NARRATIVE: CASE EVENT DATE: 20140112
